FAERS Safety Report 5813190-0 (Version None)
Quarter: 2008Q3

REPORT INFORMATION
  Report Type: 
  Country: None (occurrence: None)
  Receive Date: 20080717
  Receipt Date: 20080404
  Transmission Date: 20090109
  Serious: No
  Sender: FDA-Public Use
  Company Number: A0719343A

PATIENT
  Age: 35 Year
  Sex: Female

DRUGS (1)
  1. NICORETTE (MINT) [Suspect]
     Dates: start: 20080403, end: 20080403

REACTIONS (3)
  - RETCHING [None]
  - SENSATION OF FOREIGN BODY [None]
  - THROAT IRRITATION [None]
